FAERS Safety Report 7409999-2 (Version None)
Quarter: 2011Q2

REPORT INFORMATION
  Report Type: 
  Country: None (occurrence: None)
  Receive Date: 20110412
  Receipt Date: 20110405
  Transmission Date: 20111010
  Serious: No
  Sender: FDA-Public Use
  Company Number: US-ROXANE LABORATORIES, INC.-2011-RO-00455RO

PATIENT
  Age: 58 Year
  Sex: Male

DRUGS (1)
  1. CLOTRIMAZOLE [Suspect]
     Indication: ORAL FUNGAL INFECTION
     Route: 048
     Dates: start: 20100101, end: 20110101

REACTIONS (2)
  - DENTAL CARIES [None]
  - DRUG INEFFECTIVE [None]
